FAERS Safety Report 15612221 (Version 1)
Quarter: 2018Q4

REPORT INFORMATION
  Report Type: Report from Study
  Country: US (occurrence: US)
  Receive Date: 20181113
  Receipt Date: 20181113
  Transmission Date: 20190205
  Serious: No
  Sender: FDA-Public Use
  Company Number: US-ALEXION PHARMACEUTICALS INC.-A201814740

PATIENT
  Sex: Female

DRUGS (1)
  1. SOLIRIS [Suspect]
     Active Substance: ECULIZUMAB
     Indication: PRODUCT USED FOR UNKNOWN INDICATION
     Dosage: UNK
     Route: 065

REACTIONS (14)
  - Glomerular filtration rate decreased [Unknown]
  - Lymphocyte percentage decreased [Unknown]
  - Blood lactate dehydrogenase increased [Unknown]
  - Red blood cell count decreased [Unknown]
  - Blood chloride decreased [Unknown]
  - Haemoglobin decreased [Unknown]
  - Red cell distribution width decreased [Unknown]
  - Protein total decreased [Unknown]
  - Mean cell volume increased [Unknown]
  - Blood glucose increased [Unknown]
  - Globulins decreased [Unknown]
  - Mean platelet volume decreased [Unknown]
  - Blood sodium decreased [Unknown]
  - Haematocrit decreased [Unknown]

NARRATIVE: CASE EVENT DATE: 20180606
